FAERS Safety Report 10969452 (Version 1)
Quarter: 2015Q1

REPORT INFORMATION
  Report Type: Spontaneous
  Country: US (occurrence: US)
  Receive Date: 20150331
  Receipt Date: 20150331
  Transmission Date: 20150721
  Serious: Yes (Hospitalization, Other)
  Sender: FDA-Public Use
  Company Number: US-BIOGENIDEC-2015BI037977

PATIENT
  Age: 59 Year
  Sex: Male

DRUGS (2)
  1. TYSABRI [Suspect]
     Active Substance: NATALIZUMAB
     Indication: RELAPSING-REMITTING MULTIPLE SCLEROSIS
     Route: 042
  2. ATORVASTATIN [Concomitant]
     Active Substance: ATORVASTATIN

REACTIONS (2)
  - Cerebral haemorrhage [Recovered/Resolved]
  - Hypertension [Unknown]
